FAERS Safety Report 19037287 (Version 1)
Quarter: 2021Q1

REPORT INFORMATION
  Report Type: Spontaneous
  Country: US (occurrence: US)
  Receive Date: 20210322
  Receipt Date: 20210322
  Transmission Date: 20210420
  Serious: No
  Sender: FDA-Public Use
  Company Number: None

PATIENT
  Age: 68 Year
  Sex: Male
  Weight: 117 kg

DRUGS (9)
  1. CELECOXIB. [Concomitant]
     Active Substance: CELECOXIB
  2. HTZH [Concomitant]
  3. COENZYME Q10 [Concomitant]
     Active Substance: DIETARY SUPPLEMENT\UBIDECARENONE
  4. FISH OIL [Concomitant]
     Active Substance: FISH OIL
  5. REPATHA [Suspect]
     Active Substance: EVOLOCUMAB
     Indication: HEPATIC STEATOSIS
     Dosage: ?          QUANTITY:1 INJECTION(S);OTHER FREQUENCY:28 DAYS;?
     Route: 058
     Dates: start: 20201111, end: 20210309
  6. MULTIVITAMINS [Concomitant]
     Active Substance: VITAMINS
  7. YUCCA STALK [Concomitant]
  8. GARLIC. [Concomitant]
     Active Substance: GARLIC
  9. LISNOPRIL [Concomitant]

REACTIONS (5)
  - Flank pain [None]
  - Gait disturbance [None]
  - Pain [None]
  - Arthralgia [None]
  - Pain in extremity [None]

NARRATIVE: CASE EVENT DATE: 20210201
